FAERS Safety Report 4301733-8 (Version None)
Quarter: 2004Q1

REPORT INFORMATION
  Report Type: 
  Country: None (occurrence: None)
  Receive Date: 20040219
  Receipt Date: 20040210
  Transmission Date: 20041129
  Serious: Yes (Hospitalization, Other)
  Sender: FDA-Public Use
  Company Number: HQWYE489609DEC03

PATIENT
  Age: 58 Year
  Sex: Female
  Weight: 131.21 kg

DRUGS (6)
  1. ZOSYN [Suspect]
     Indication: OSTEOMYELITIS
     Dosage: 4.5 G 1 X 8 HR, INTRAVENOUS
     Route: 042
     Dates: start: 20031114, end: 20031207
  2. ZOSYN [Suspect]
  3. CELEBREX [Concomitant]
  4. TYLENOL W/CODEINE NO. 4 (CODEINE PHOSPHATE/PARACETAMOL) [Concomitant]
  5. DETROL [Concomitant]
  6. HYDROCORTISONE [Concomitant]

REACTIONS (4)
  - CATHETER RELATED INFECTION [None]
  - CHILLS [None]
  - NEUTROPENIA [None]
  - TREMOR [None]
